FAERS Safety Report 15426292 (Version 6)
Quarter: 2020Q3

REPORT INFORMATION
  Report Type: Report from Study
  Country: ES (occurrence: ES)
  Receive Date: 20180925
  Receipt Date: 20200818
  Transmission Date: 20201102
  Serious: Yes (Hospitalization)
  Sender: FDA-Public Use
  Company Number: ES-SA-2018SA257829

PATIENT

DRUGS (14)
  1. FAMPYRA [Concomitant]
     Active Substance: DALFAMPRIDINE
     Indication: GAIT DISTURBANCE
     Dosage: 10, Q12H
     Dates: start: 20140917
  2. LIORESAL [Concomitant]
     Active Substance: BACLOFEN
     Indication: MUSCLE SPASTICITY
     Dosage: 25 MG, Q8H
     Route: 065
     Dates: start: 20171211
  3. GABAPENTIN. [Concomitant]
     Active Substance: GABAPENTIN
     Indication: MUSCLE SPASTICITY
     Dosage: 300, Q12H
     Route: 065
     Dates: start: 20161226, end: 20170519
  4. METOCLOPRAMIDE. [Concomitant]
     Active Substance: METOCLOPRAMIDE
     Indication: PROPHYLAXIS
     Dosage: 10 (NOS), Q8H
     Dates: start: 20180115, end: 20180118
  5. TARDYFERON [Concomitant]
     Active Substance: FERROUS SULFATE
     Indication: ANAEMIA OF PREGNANCY
     Dosage: 80, QD
     Route: 065
     Dates: start: 20190110, end: 20190617
  6. ACYCLOVIR [ACICLOVIR] [Concomitant]
     Active Substance: ACYCLOVIR
     Indication: ANTIVIRAL PROPHYLAXIS
     Dosage: 200, Q12H
     Route: 065
     Dates: start: 20180115, end: 20180213
  7. CONDROSAN [Concomitant]
     Indication: BONE DISORDER
     Dosage: 400, Q12H
     Route: 065
     Dates: start: 20110314
  8. METHYLPREDNISOLONE. [Concomitant]
     Active Substance: METHYLPREDNISOLONE
     Indication: PROPHYLAXIS
     Dosage: 1 G, QD
     Dates: start: 20180115, end: 20180118
  9. PARACETAMOL [Concomitant]
     Active Substance: ACETAMINOPHEN
     Indication: PROPHYLAXIS
     Dosage: 1 G, Q12H
     Dates: start: 20180115, end: 20180118
  10. LOETTE [Concomitant]
     Active Substance: ETHINYL ESTRADIOL\LEVONORGESTREL
     Indication: CONTRACEPTION
     Dosage: 100/200, QD
     Route: 065
     Dates: start: 20151116
  11. OMEPRAZOLE. [Concomitant]
     Active Substance: OMEPRAZOLE
     Indication: PROPHYLAXIS
     Dosage: 20, QD
     Route: 065
     Dates: start: 20170613
  12. ACYCLOVIR [ACICLOVIR] [Concomitant]
     Active Substance: ACYCLOVIR
     Dosage: 200 (NOS), Q12H
     Dates: start: 20180115, end: 20180118
  13. DEXCHLORPHENIRAMINE [Concomitant]
     Active Substance: DEXCHLORPHENIRAMINE
     Indication: PROPHYLAXIS
     Dosage: 1 DF, Q8H
     Dates: start: 20180115, end: 20180118
  14. ALEMTUZUMAB [Suspect]
     Active Substance: ALEMTUZUMAB
     Indication: RELAPSING-REMITTING MULTIPLE SCLEROSIS
     Dosage: UNK, UNK
     Route: 042
     Dates: start: 20180115, end: 20180118

REACTIONS (14)
  - Skin oedema [Recovered/Resolved]
  - Skin reaction [Recovered/Resolved]
  - Vertigo [Recovered/Resolved]
  - Pruritus [Recovered/Resolved]
  - Urticaria [Recovered/Resolved]
  - Headache [Unknown]
  - Oedema peripheral [Not Recovered/Not Resolved]
  - Syncope [Recovered/Resolved]
  - Muscle spasticity [Recovering/Resolving]
  - Disease recurrence [Recovering/Resolving]
  - Multiple sclerosis relapse [Unknown]
  - Thyroid hormones increased [Recovered/Resolved]
  - Urinary tract infection [Recovered/Resolved]
  - Insomnia [Recovered/Resolved]

NARRATIVE: CASE EVENT DATE: 20180116
